FAERS Safety Report 25689018 (Version 3)
Quarter: 2025Q4

REPORT INFORMATION
  Report Type: Report from Study
  Country: US (occurrence: US)
  Receive Date: 20250818
  Receipt Date: 20251224
  Transmission Date: 20260117
  Serious: Yes (Hospitalization, Other)
  Sender: ALEXION PHARMACEUTICALS
  Company Number: US-AstraZeneca-CH-00927581A

PATIENT
  Age: 49 Year
  Sex: Female
  Weight: 84.263 kg

DRUGS (7)
  1. TEZEPELUMAB [Suspect]
     Active Substance: TEZEPELUMAB
     Indication: Asthma
     Dosage: 210 MICROGRAM EVERY 4 WEEKS
     Route: 065
  2. TEZEPELUMAB [Suspect]
     Active Substance: TEZEPELUMAB
  3. AIRSUPRA [Suspect]
     Active Substance: ALBUTEROL SULFATE\BUDESONIDE
     Route: 065
  4. BREZTRI [Suspect]
     Active Substance: BUDESONIDE\FORMOTEROL\GLYCOPYRROLATE
     Route: 065
  5. OMEPRAZOLE [Suspect]
     Active Substance: OMEPRAZOLE
     Route: 065
  6. FUROSEMIDE [Concomitant]
     Active Substance: FUROSEMIDE
     Route: 065
  7. PREDNISONE [Concomitant]
     Active Substance: PREDNISONE
     Route: 065

REACTIONS (23)
  - Pulmonary oedema [Unknown]
  - Ileus [Unknown]
  - Drug effect less than expected [Unknown]
  - Respiratory tract congestion [Unknown]
  - Seasonal allergy [Unknown]
  - Sneezing [Unknown]
  - Oedema [Unknown]
  - Nausea [Unknown]
  - Diarrhoea [Unknown]
  - Pain [Unknown]
  - Umbilical hernia [Unknown]
  - Pyrexia [Unknown]
  - Pleuritic pain [Unknown]
  - Bladder wall calcification [Unknown]
  - Insomnia [Unknown]
  - Chest pain [Unknown]
  - Malaise [Unknown]
  - Sinus congestion [Unknown]
  - Productive cough [Unknown]
  - Obstructive sleep apnoea syndrome [Unknown]
  - Rhinitis allergic [Unknown]
  - Overweight [Unknown]
  - Sputum purulent [Unknown]
